FAERS Safety Report 10522701 (Version 1)
Quarter: 2014Q4

REPORT INFORMATION
  Report Type: Spontaneous
  Country: US (occurrence: US)
  Receive Date: 20141016
  Receipt Date: 20141016
  Transmission Date: 20150528
  Serious: Yes (Other)
  Sender: FDA-Public Use
  Company Number: US-MUNDIPHARMA DS AND PHARMACOVIGILANCE-USA-2014-0118104

PATIENT
  Age: 20 Year
  Sex: Female

DRUGS (2)
  1. OXYCONTIN [Suspect]
     Active Substance: OXYCODONE HYDROCHLORIDE
     Indication: DRUG ABUSE
  2. ALCOHOL. [Suspect]
     Active Substance: ALCOHOL

REACTIONS (3)
  - Loss of consciousness [Unknown]
  - Victim of sexual abuse [Unknown]
  - Substance abuse [Unknown]

NARRATIVE: CASE EVENT DATE: 2010
